FAERS Safety Report 4700566-8 (Version None)
Quarter: 2005Q1

REPORT INFORMATION
  Report Type: 
  Country: None (occurrence: None)
  Receive Date: 20050127
  Receipt Date: 20050127
  Transmission Date: 20050727
  Serious: No
  Sender: FDA-Public Use
  Company Number: None

PATIENT
  Sex: Male
  Weight: 83.3 kg

DRUGS (1)
  1. FLUOROURACIL [Suspect]
     Dates: start: 20050406, end: 20050517

REACTIONS (5)
  - BACTERAEMIA [None]
  - CENTRAL LINE INFECTION [None]
  - CHILLS [None]
  - INFUSION SITE PAIN [None]
  - PYREXIA [None]
